FAERS Safety Report 9780174 (Version 1)
Quarter: 2013Q4

REPORT INFORMATION
  Report Type: Spontaneous
  Country: IT (occurrence: IT)
  Receive Date: 20131223
  Receipt Date: 20131223
  Transmission Date: 20140711
  Serious: Yes (Disabling)
  Sender: FDA-Public Use
  Company Number: PHHY2013IT150115

PATIENT
  Age: 49 Year
  Sex: Female

DRUGS (11)
  1. ZOMETA [Suspect]
     Indication: BREAST CANCER
     Dosage: 1 POSOLOGIC UNIT, CYCLIC
     Route: 042
     Dates: start: 20100521, end: 20120404
  2. METFORMIN [Concomitant]
     Dosage: UNK UKN, UNK
  3. INSULIN [Concomitant]
     Dosage: UNK UKN, UNK
     Dates: start: 20120901, end: 20131011
  4. BEVACIZUMAB [Concomitant]
     Dosage: UNK UKN, UNK
     Dates: start: 20110101
  5. PRITORPLUS [Concomitant]
     Dosage: UNK UKN, UNK
  6. DECAPEPTYL//TRIPTORELIN ACETATE [Concomitant]
     Dosage: UNK UKN, UNK
     Dates: start: 20100501
  7. TAMOXIFEN [Concomitant]
     Dosage: UNK UKN, UNK
     Dates: start: 20100501
  8. TAXOL [Concomitant]
     Dosage: UNK UKN, UNK
     Dates: start: 20110101
  9. NOLVADEX//TAMOXIFEN [Concomitant]
     Dosage: UNK UKN, UNK
  10. FEMARA [Concomitant]
     Dosage: UNK UKN, UNK
  11. ANTIBIOTICS [Concomitant]
     Dosage: UNK UKN, UNK

REACTIONS (1)
  - Osteonecrosis of jaw [Recovered/Resolved]
